FAERS Safety Report 5820368-9 (Version None)
Quarter: 2008Q3

REPORT INFORMATION
  Report Type: 
  Country: None (occurrence: None)
  Receive Date: 20080724
  Receipt Date: 20070618
  Transmission Date: 20090109
  Serious: Yes (Other)
  Sender: FDA-Public Use
  Company Number: A0657201A

PATIENT
  Age: 68 Year
  Sex: Female

DRUGS (13)
  1. AVANDIA [Suspect]
     Dosage: 4MG TWICE PER DAY
     Route: 048
     Dates: start: 20020101
  2. GLIMEPIRIDE [Concomitant]
  3. METFORMIN [Concomitant]
  4. LEVOTHYROXINE SODIUM [Concomitant]
  5. FUROSEMIDE [Concomitant]
  6. CRESTOR [Concomitant]
  7. LISINOPRIL [Concomitant]
  8. ISRADIPINE [Concomitant]
  9. ZETIA [Concomitant]
  10. POTASSIUM CHLORIDE [Concomitant]
  11. ZOCOR [Concomitant]
  12. ACIPHEX [Concomitant]
  13. IRON [Concomitant]

REACTIONS (4)
  - ANAEMIA [None]
  - JOINT SWELLING [None]
  - OEDEMA PERIPHERAL [None]
  - WEIGHT INCREASED [None]
